FAERS Safety Report 21868118 (Version 3)
Quarter: 2023Q2

REPORT INFORMATION
  Report Type: Report from Study
  Country: US (occurrence: US)
  Receive Date: 20230116
  Receipt Date: 20230509
  Transmission Date: 20230722
  Serious: Yes (Hospitalization, Other)
  Sender: FDA-Public Use
  Company Number: US-ABBVIE-22K-163-4456024-00

PATIENT
  Age: 67 Year
  Sex: Male

DRUGS (2)
  1. IMBRUVICA [Suspect]
     Active Substance: IBRUTINIB
     Indication: Chronic lymphocytic leukaemia
     Route: 048
     Dates: start: 201502
  2. IMBRUVICA [Suspect]
     Active Substance: IBRUTINIB
     Indication: Chronic lymphocytic leukaemia
     Route: 048
     Dates: start: 20140201

REACTIONS (13)
  - Lymphadenectomy [Unknown]
  - Sepsis [Unknown]
  - White blood cell count increased [Recovered/Resolved]
  - Hospitalisation [Unknown]
  - Knee deformity [Unknown]
  - Lymphoma [Unknown]
  - Dysstasia [Unknown]
  - Dizziness postural [Unknown]
  - Gait disturbance [Unknown]
  - Pollakiuria [Unknown]
  - Colon cancer [Unknown]
  - Drug ineffective [Not Recovered/Not Resolved]
  - Biopsy bone marrow abnormal [Unknown]

NARRATIVE: CASE EVENT DATE: 20140213
